FAERS Safety Report 10572614 (Version 1)
Quarter: 2014Q4

REPORT INFORMATION
  Report Type: Spontaneous
  Country: ES (occurrence: None)
  Receive Date: 20141106
  Receipt Date: 20141106
  Transmission Date: 20150529
  Serious: Yes (Death, Hospitalization)
  Sender: FDA-Public Use
  Company Number: IPC201410-000570

PATIENT
  Age: 71 Year
  Sex: Female

DRUGS (10)
  1. ATORVASTATIN (ATORVASTATIN) (ATORVASTATIN) [Concomitant]
     Active Substance: ATORVASTATIN
  2. MANIDIPINE (MANIDIPINE) (MANIDIPINE) [Concomitant]
  3. PARICALCITOL (PARICALCITOL) (PARICALCITOL) [Concomitant]
  4. FUROSEMIDE (FUROSEMIDE) (FUROSEMIDE) [Concomitant]
     Active Substance: FUROSEMIDE
  5. INSULIN (INSULIN) (INSULIN) [Concomitant]
  6. ALLOPURINOL. [Suspect]
     Active Substance: ALLOPURINOL
     Indication: HYPERURICAEMIA
     Dosage: PER DAY
  7. BISOPROLOL (BISOPROLOL) (BISOPROLOL) [Concomitant]
  8. ESOMEPRAZOLE (ESOMEPRAZOLE) (ESOMEPRAZOLE) [Concomitant]
  9. CALCIUM POLYSTYRENE SULFONATE (CALCIUM POLYSTYRENE SULFONATE) (CALCIUM POLYSTYRENE SULFONATE) [Concomitant]
  10. DOXAZOSIN (DOXAZOSIN) (DOXAZOSIN) [Concomitant]

REACTIONS (8)
  - Respiratory failure [None]
  - Renal failure [None]
  - Sepsis [None]
  - Multi-organ failure [None]
  - Shock [None]
  - Pyrexia [None]
  - Pancytopenia [None]
  - Toxic epidermal necrolysis [None]
